FAERS Safety Report 6885262-3 (Version None)
Quarter: 2010Q3

REPORT INFORMATION
  Report Type: 
  Country: None (occurrence: None)
  Receive Date: 20100729
  Receipt Date: 20100729
  Transmission Date: 20110219
  Serious: Yes (Hospitalization)
  Sender: FDA-Public Use
  Company Number: None

PATIENT
  Sex: Female
  Weight: 102.9665 kg

DRUGS (3)
  1. TAXOTERE [Suspect]
     Indication: BREAST CANCER
     Dosage: 160MG Q3 WEEKS IV DRIP
     Route: 041
     Dates: start: 20100312, end: 20100423
  2. CYTOXAN UNKNOWN UNKNOWN [Suspect]
     Indication: BREAST CANCER
     Dosage: 1270MG Q3 WEEKS IV DRIP
     Route: 041
     Dates: start: 20100312, end: 20100423
  3. AVASTIN 400MG/100MG GENENTECH [Suspect]
     Indication: BREAST CANCER
     Dosage: 1500MG Q3 WEEKS IV DRIP
     Route: 041
     Dates: start: 20100423, end: 20100423

REACTIONS (6)
  - ANAEMIA [None]
  - COLITIS [None]
  - MALNUTRITION [None]
  - PNEUMONIA [None]
  - RESPIRATORY FAILURE [None]
  - SEPTIC SHOCK [None]
